FAERS Safety Report 9171657 (Version 1)
Quarter: 2013Q1

REPORT INFORMATION
  Report Type: Spontaneous
  Country: US (occurrence: None)
  Receive Date: 20130318
  Receipt Date: 20130318
  Transmission Date: 20140127
  Serious: Yes (Hospitalization)
  Sender: FDA-Public Use
  Company Number: None

PATIENT
  Age: 50 Year
  Sex: Male
  Weight: 108.2 kg

DRUGS (2)
  1. CLINDAMYCIN [Suspect]
     Dosage: 300 MG QID PO
     Route: 048
     Dates: start: 20130309, end: 20130314
  2. AMPICILLIN/SULBACTAM [Suspect]
     Dosage: 3 GM QID IV
     Route: 042
     Dates: start: 20130313, end: 20130314

REACTIONS (1)
  - Rash erythematous [None]
